FAERS Safety Report 7315429-1 (Version None)
Quarter: 2011Q1

REPORT INFORMATION
  Report Type: 
  Country: None (occurrence: None)
  Receive Date: 20110225
  Receipt Date: 20110221
  Transmission Date: 20110831
  Serious: Yes (Other)
  Sender: FDA-Public Use
  Company Number: B0697832A

PATIENT
  Sex: Male

DRUGS (15)
  1. ALDACTONE [Concomitant]
     Dosage: 25MG PER DAY
     Route: 048
  2. WARFARIN SODIUM [Concomitant]
     Dosage: 3.5MG PER DAY
     Route: 048
  3. PARIET [Concomitant]
     Dosage: 10MG PER DAY
     Route: 048
  4. LIPIDIL [Concomitant]
     Dosage: 100MG PER DAY
     Route: 048
  5. NOVORAPID [Concomitant]
     Indication: DIABETES MELLITUS
     Route: 058
  6. CHINESE MEDICINE [Concomitant]
     Route: 048
  7. FUROSEMIDE [Concomitant]
     Dosage: 40MG PER DAY
     Route: 048
  8. ASPIRIN [Concomitant]
     Dosage: 100MG PER DAY
     Route: 048
  9. AVOLVE [Suspect]
     Indication: BENIGN PROSTATIC HYPERPLASIA
     Dosage: .5MG PER DAY
     Route: 048
     Dates: start: 20110119
  10. LANTUS [Concomitant]
     Indication: DIABETES MELLITUS
     Route: 058
  11. OLMETEC [Concomitant]
     Dosage: 20MG PER DAY
     Route: 048
  12. PANALDINE [Concomitant]
     Dosage: 200MG PER DAY
     Route: 048
  13. PRAVASTATIN [Concomitant]
     Dosage: 10MG PER DAY
     Route: 048
  14. ITOROL [Concomitant]
     Dosage: 40MG PER DAY
     Route: 048
  15. SALOBEL [Concomitant]
     Dosage: 200MG PER DAY
     Route: 048

REACTIONS (1)
  - HYPOGLYCAEMIA [None]
